FAERS Safety Report 9039999 (Version 3)
Quarter: 2013Q1

REPORT INFORMATION
  Report Type: Spontaneous
  Country: JP (occurrence: JP)
  Receive Date: 20130130
  Receipt Date: 20130301
  Transmission Date: 20140127
  Serious: Yes (Death, Other)
  Sender: FDA-Public Use
  Company Number: PHHY2013JP008452

PATIENT
  Age: 48 Year
  Sex: Female

DRUGS (7)
  1. NEORAL [Suspect]
     Indication: DERMATOMYOSITIS
     Dosage: 150 MG, DAILY
     Route: 048
  2. NEORAL [Suspect]
     Indication: INTERSTITIAL LUNG DISEASE
     Dosage: 200 MG, DAILY
     Route: 048
  3. NEORAL [Suspect]
     Dosage: 250 MG, DAILY
     Route: 048
  4. NEORAL [Suspect]
     Dosage: 150 MG, DAILY
     Route: 048
  5. PREDNISOLONE [Suspect]
     Indication: DERMATOMYOSITIS
     Dosage: 40 MG, UNK
     Route: 048
  6. PREDNISOLONE [Suspect]
     Indication: INTERSTITIAL LUNG DISEASE
     Dosage: 30 MG, UNK
     Route: 048
  7. PREDNISOLONE [Suspect]
     Dosage: 20 MG, UNK
     Route: 048

REACTIONS (15)
  - Gastrointestinal haemorrhage [Fatal]
  - Pneumonia cytomegaloviral [Fatal]
  - Pneumocystis jirovecii pneumonia [Fatal]
  - Disseminated intravascular coagulation [Unknown]
  - Multi-organ failure [Unknown]
  - Erythema [Recovering/Resolving]
  - Respiratory failure [Unknown]
  - Cough [Recovering/Resolving]
  - Rales [Recovering/Resolving]
  - Rash [Recovering/Resolving]
  - Dermatomyositis [Recovering/Resolving]
  - Muscular weakness [Recovering/Resolving]
  - Oedema peripheral [Recovering/Resolving]
  - Interstitial lung disease [Unknown]
  - Pneumothorax [Unknown]
